FAERS Safety Report 9172100 (Version 1)
Quarter: 2013Q1

REPORT INFORMATION
  Report Type: Spontaneous
  Country: US (occurrence: US)
  Receive Date: 20130319
  Receipt Date: 20130319
  Transmission Date: 20140127
  Serious: Yes (Other)
  Sender: FDA-Public Use
  Company Number: US-009507513-2011SP054461

PATIENT
  Sex: Female
  Weight: 65.77 kg

DRUGS (1)
  1. NUVARING [Suspect]
     Indication: CONTRACEPTION
     Dates: start: 20091203, end: 20100102

REACTIONS (13)
  - Pulmonary embolism [Recovered/Resolved]
  - Pleuritic pain [Unknown]
  - Post-tussive vomiting [Unknown]
  - Diarrhoea [Recovered/Resolved]
  - Bronchitis [Unknown]
  - Pleural effusion [Unknown]
  - Upper respiratory tract infection [Unknown]
  - Muscle strain [Unknown]
  - Maternal exposure before pregnancy [Unknown]
  - Premature labour [Unknown]
  - Pelvic pain [Unknown]
  - Muscle spasms [Unknown]
  - Vaginal discharge [Unknown]
